FAERS Safety Report 4358672-6 (Version None)
Quarter: 2004Q2

REPORT INFORMATION
  Report Type: 
  Country: None (occurrence: None)
  Receive Date: 20040511
  Receipt Date: 20040429
  Transmission Date: 20050107
  Serious: Yes (Hospitalization)
  Sender: FDA-Public Use
  Company Number: 2004211118GB

PATIENT
  Age: 43 Year
  Sex: Male

DRUGS (10)
  1. METHYLPREDNISOLONE [Suspect]
  2. BMS224818 (BMS224818) [Suspect]
     Dosage: 10 MG/KG, IV
     Route: 042
     Dates: start: 20020817
  3. BASILIXIMAB (BASILIXIMAB) [Suspect]
     Dosage: ORAL
     Route: 048
  4. MYCOPHENOLATE MOFETIL (MYCOPHENOLATE MOFETIL) [Suspect]
     Dosage: ORAL
     Route: 048
     Dates: start: 20020817
  5. PREDNISOLONE [Suspect]
     Dosage: ORAL
     Route: 048
     Dates: start: 20020821
  6. ASPIRIN [Concomitant]
  7. RANITIDINE [Concomitant]
  8. NYSTATIN [Concomitant]
  9. COTRIM [Concomitant]
  10. NIFEDIPINE [Concomitant]

REACTIONS (1)
  - BLOOD CREATININE INCREASED [None]
